FAERS Safety Report 10369591 (Version 2)
Quarter: 2015Q4

REPORT INFORMATION
  Report Type: Spontaneous
  Country: US (occurrence: US)
  Receive Date: 20140807
  Receipt Date: 20151013
  Transmission Date: 20160304
  Serious: No
  Sender: FDA-Public Use
  Company Number: US-AMGEN INC.-USASP2014024365

PATIENT
  Age: 52 Year
  Sex: Female

DRUGS (22)
  1. NEULASTA [Concomitant]
     Active Substance: PEGFILGRASTIM
     Dosage: 6 MG, UNK
  2. NAVELBINE [Concomitant]
     Active Substance: VINORELBINE TARTRATE
     Dosage: 46 MG, UNK
     Route: 058
  3. XGEVA [Concomitant]
     Active Substance: DENOSUMAB
     Dosage: 120 MG, UNK
     Route: 058
  4. CARBOPLATIN. [Concomitant]
     Active Substance: CARBOPLATIN
     Dosage: 700 MG, UNK
  5. TAMOXIFEN                          /00388702/ [Concomitant]
     Active Substance: TAMOXIFEN
     Dosage: 20 MG, UNK
  6. HERCEPTIN [Suspect]
     Active Substance: TRASTUZUMAB
     Dosage: 534 MG, UNK
     Route: 065
     Dates: start: 20100325
  7. LUPRON [Concomitant]
     Active Substance: LEUPROLIDE ACETATE
     Dosage: 22.5 MG, UNK
  8. NEUPOGEN [Suspect]
     Active Substance: FILGRASTIM
     Indication: PRODUCT USED FOR UNKNOWN INDICATION
     Dosage: 480 MUG, UNK
     Route: 065
  9. HERCEPTIN [Suspect]
     Active Substance: TRASTUZUMAB
     Dosage: 160 MG, UNK
     Route: 065
     Dates: start: 20100930
  10. ARANESP [Concomitant]
     Active Substance: DARBEPOETIN ALFA
     Dosage: 300 MG, UNK
     Route: 058
  11. TAXOTERE [Concomitant]
     Active Substance: DOCETAXEL
     Dosage: 130 MG, UNK
  12. FLU [Concomitant]
     Active Substance: INFLUENZA VIRUS VACCINE
     Dosage: UNK
  13. VELCADE [Concomitant]
     Active Substance: BORTEZOMIB
     Dosage: UNK
  14. HERCEPTIN [Suspect]
     Active Substance: TRASTUZUMAB
     Dosage: 168 MG, UNK
     Route: 065
     Dates: start: 20080619
  15. ZOMETA [Concomitant]
     Active Substance: ZOLEDRONIC ACID
     Dosage: 4 MG, UNK
  16. FEMARA [Concomitant]
     Active Substance: LETROZOLE
     Dosage: 2.5 MG, UNK
  17. ABRAXANE [Concomitant]
     Active Substance: PACLITAXEL
     Dosage: 187 MG, UNK
  18. HERCEPTIN [Suspect]
     Active Substance: TRASTUZUMAB
     Indication: BREAST CANCER
     Dosage: 504 MG, UNK
     Route: 065
     Dates: start: 20071213
  19. HERCEPTIN [Suspect]
     Active Substance: TRASTUZUMAB
     Dosage: 332 MG, UNK
     Route: 065
     Dates: start: 20091208
  20. HERCEPTIN [Suspect]
     Active Substance: TRASTUZUMAB
     Dosage: 172 MG, UNK
     Route: 065
     Dates: start: 20110211
  21. HERCEPTIN [Suspect]
     Active Substance: TRASTUZUMAB
     Dosage: 344 MG, UNK
     Route: 065
     Dates: start: 20110225
  22. HERCEPTIN [Suspect]
     Active Substance: TRASTUZUMAB
     Dosage: 498 MG, UNK
     Route: 065
     Dates: start: 20100216

REACTIONS (29)
  - Oropharyngeal pain [Unknown]
  - Limb discomfort [Unknown]
  - Amenorrhoea [Unknown]
  - Nausea [Unknown]
  - Pain in extremity [Unknown]
  - Axillary pain [Unknown]
  - Haemorrhoids [Unknown]
  - Headache [Unknown]
  - Musculoskeletal discomfort [Unknown]
  - Erythema [Unknown]
  - Disorientation [Unknown]
  - Musculoskeletal pain [Unknown]
  - Hypoaesthesia [Unknown]
  - Blood pressure decreased [Unknown]
  - Local swelling [Unknown]
  - Dyspnoea [Unknown]
  - Paraesthesia [Unknown]
  - Insomnia [Unknown]
  - Diarrhoea [Unknown]
  - Pain [Unknown]
  - Back pain [Unknown]
  - Gait disturbance [Unknown]
  - Neck pain [Unknown]
  - Constipation [Unknown]
  - Muscular weakness [Unknown]
  - Fatigue [Unknown]
  - Arthralgia [Unknown]
  - Pyrexia [Unknown]
  - Lymphadenopathy [Unknown]
